FAERS Safety Report 11874006 (Version 2)
Quarter: 2016Q1

REPORT INFORMATION
  Report Type: Spontaneous
  Country: US (occurrence: US)
  Receive Date: 20151229
  Receipt Date: 20160301
  Transmission Date: 20160526
  Serious: No
  Sender: FDA-Public Use
  Company Number: US-009507513-1512USA010089

PATIENT
  Age: 30 Year
  Sex: Female
  Weight: 72.56 kg

DRUGS (2)
  1. NEXPLANON [Suspect]
     Active Substance: ETONOGESTREL
     Indication: CONTRACEPTION
     Dosage: 68 MG/ 1 ROD EVERY 3 YEARS
     Route: 059
     Dates: start: 20151217, end: 20160107
  2. NEXPLANON [Suspect]
     Active Substance: ETONOGESTREL
     Dosage: UNK
     Route: 059
     Dates: start: 2016

REACTIONS (5)
  - Device difficult to use [Recovered/Resolved]
  - Skin haemorrhage [Recovered/Resolved]
  - Needle issue [Unknown]
  - Device expulsion [Recovered/Resolved]
  - Surgical skin tear [Recovered/Resolved]

NARRATIVE: CASE EVENT DATE: 20151217
